FAERS Safety Report 19193279 (Version 1)
Quarter: 2021Q2

REPORT INFORMATION
  Report Type: Spontaneous
  Country: SG (occurrence: SG)
  Receive Date: 20210428
  Receipt Date: 20210428
  Transmission Date: 20210717
  Serious: Yes (Hospitalization)
  Sender: FDA-Public Use
  Company Number: SG-B.I. PHARMACEUTICALS,INC./RIDGEFIELD-2021-BI-098499

PATIENT
  Age: 65 Year
  Sex: Female

DRUGS (5)
  1. LINAGLIPTIN [Concomitant]
     Active Substance: LINAGLIPTIN
     Indication: PRODUCT USED FOR UNKNOWN INDICATION
  2. GLIPIZIDE. [Concomitant]
     Active Substance: GLIPIZIDE
     Indication: PRODUCT USED FOR UNKNOWN INDICATION
  3. IRON POLYMALTOSE [Concomitant]
     Active Substance: IRON POLYMALTOSE
     Indication: PRODUCT USED FOR UNKNOWN INDICATION
  4. INDAPAMIDE. [Concomitant]
     Active Substance: INDAPAMIDE
     Indication: PRODUCT USED FOR UNKNOWN INDICATION
  5. JARDIANCE DUO [Suspect]
     Active Substance: EMPAGLIFLOZIN\METFORMIN HYDROCHLORIDE
     Indication: TYPE 2 DIABETES MELLITUS
     Dosage: [50 MG  EMPAGLIFLOZIN AND 2 G OF METFORMIN]

REACTIONS (13)
  - Chronic kidney disease [Recovered/Resolved]
  - Leukocytosis [Recovered/Resolved]
  - Nephrotic syndrome [Recovered/Resolved]
  - Renal injury [Recovered/Resolved]
  - Extra dose administered [Unknown]
  - Hypoglycaemia [Recovered/Resolved]
  - Gastroenteritis [Unknown]
  - Anaemia [Recovered/Resolved]
  - Neutrophilia [Recovered/Resolved]
  - Hyperlactacidaemia [Recovered/Resolved]
  - Pyuria [Recovered/Resolved]
  - Haematuria [Recovered/Resolved]
  - Metabolic acidosis [Recovered/Resolved]
